FAERS Safety Report 17198109 (Version 2)
Quarter: 2019Q4

REPORT INFORMATION
  Report Type: Spontaneous
  Country: IT (occurrence: IT)
  Receive Date: 20191225
  Receipt Date: 20191230
  Transmission Date: 20200122
  Serious: Yes (Other)
  Sender: FDA-Public Use
  Company Number: IT-TEVA-2019-IT-1156020

PATIENT
  Age: 73 Year
  Sex: Female

DRUGS (5)
  1. PACLITAXEL SANDOZ [Suspect]
     Active Substance: PACLITAXEL
     Indication: ENDOMETRIAL NEOPLASM
     Dosage: 147.9MG, 1 CYCLICAL
     Route: 041
     Dates: start: 20190802, end: 20191105
  2. LUCEN 20 MG COMPRESSE GASTRORESISTENTI [Concomitant]
     Indication: GASTROOESOPHAGEAL REFLUX DISEASE
     Dosage: 20MG PER DAY
     Route: 048
  3. EFEXOR [Concomitant]
     Active Substance: VENLAFAXINE HYDROCHLORIDE
     Indication: DEPRESSION
     Dosage: 75MG
     Route: 048
  4. CARBOPLATINO TEVA [Suspect]
     Active Substance: CARBOPLATIN
     Indication: ENDOMETRIAL ADENOCARCINOMA
     Dosage: 237MG, 1 CYCLICAL
     Route: 041
     Dates: start: 20190802, end: 20191105
  5. LOBIVON [Concomitant]
     Active Substance: NEBIVOLOL HYDROCHLORIDE
     Indication: HYPERTENSION
     Dosage: 5MG PER DAY
     Route: 048

REACTIONS (4)
  - Hypotension [Recovered/Resolved]
  - Feeling hot [Recovered/Resolved]
  - Malaise [Recovered/Resolved]
  - Pruritus [Recovered/Resolved]

NARRATIVE: CASE EVENT DATE: 20191105
